FAERS Safety Report 4279196-0 (Version None)
Quarter: 2004Q1

REPORT INFORMATION
  Report Type: 
  Country: None (occurrence: None)
  Receive Date: 20040126
  Receipt Date: 20040126
  Transmission Date: 20041129
  Serious: Yes (Other)
  Sender: FDA-Public Use
  Company Number: None

PATIENT
  Age: 75 Year
  Sex: Male
  Weight: 83.9154 kg

DRUGS (2)
  1. CYPHER STENT  2.50 MM 13 MM RXCXS13250 [Suspect]
  2. CYPHER STENT [Suspect]

REACTIONS (8)
  - DYSGEUSIA [None]
  - FEELING HOT [None]
  - HYPERTENSION [None]
  - LACRIMATION INCREASED [None]
  - MALAISE [None]
  - PAROSMIA [None]
  - SURGICAL PROCEDURE REPEATED [None]
  - URTICARIA [None]
